FAERS Safety Report 5720459-7 (Version None)
Quarter: 2008Q2

REPORT INFORMATION
  Report Type: 
  Country: None (occurrence: None)
  Receive Date: 20080428
  Receipt Date: 20080416
  Transmission Date: 20081010
  Serious: Yes (Hospitalization, Other)
  Sender: FDA-Public Use
  Company Number: AU-PFIZER INC-2008034842

PATIENT
  Age: 53 Year
  Sex: Male

DRUGS (4)
  1. CHAMPIX [Suspect]
  2. ANTIHYPERTENSIVES [Concomitant]
  3. SERETIDE [Concomitant]
     Indication: CHRONIC OBSTRUCTIVE PULMONARY DISEASE
  4. ALL OTHER THERAPEUTIC PRODUCTS [Concomitant]
     Indication: CHRONIC OBSTRUCTIVE PULMONARY DISEASE

REACTIONS (2)
  - HAEMOGLOBIN DECREASED [None]
  - SURGERY [None]
